FAERS Safety Report 20140404 (Version 2)
Quarter: 2022Q1

REPORT INFORMATION
  Report Type: Spontaneous
  Country: JP (occurrence: JP)
  Receive Date: 20211202
  Receipt Date: 20220331
  Transmission Date: 20220423
  Serious: Yes (Hospitalization, Other)
  Sender: FDA-Public Use
  Company Number: JP-TAKEDA-2021TJP119314

PATIENT
  Age: 52 Year
  Sex: Female

DRUGS (4)
  1. LEUPLIN [Suspect]
     Active Substance: LEUPROLIDE ACETATE
     Indication: Adenomyosis
     Route: 058
  2. LEUPLIN [Suspect]
     Active Substance: LEUPROLIDE ACETATE
     Indication: Iron deficiency anaemia
  3. SODIUM FERROUS CITRATE [Suspect]
     Active Substance: SODIUM FERROUS CITRATE
     Indication: Adenomyosis
     Route: 048
  4. SODIUM FERROUS CITRATE [Suspect]
     Active Substance: SODIUM FERROUS CITRATE
     Indication: Iron deficiency anaemia

REACTIONS (3)
  - Posterior reversible encephalopathy syndrome [Recovered/Resolved]
  - Blood pressure increased [Unknown]
  - Off label use [Unknown]
